FAERS Safety Report 6367387-4 (Version None)
Quarter: 2009Q3

REPORT INFORMATION
  Report Type: 
  Country: None (occurrence: None)
  Receive Date: 20090921
  Receipt Date: 20090914
  Transmission Date: 20100115
  Serious: Yes (Death)
  Sender: FDA-Public Use
  Company Number: A0798075A

PATIENT
  Age: 70 Year
  Sex: Female

DRUGS (1)
  1. PROMACTA [Suspect]
     Indication: THROMBOCYTOPENIA
     Dosage: 50MG PER DAY
     Route: 048
     Dates: start: 20090313, end: 20090323

REACTIONS (3)
  - DRUG INEFFECTIVE [None]
  - MALIGNANT NEOPLASM PROGRESSION [None]
  - PANCREATIC CARCINOMA [None]
